FAERS Safety Report 8392213-1 (Version None)
Quarter: 2012Q2

REPORT INFORMATION
  Report Type: 
  Country: None (occurrence: None)
  Receive Date: 20120529
  Receipt Date: 20120515
  Transmission Date: 20120825
  Serious: Yes (Other)
  Sender: FDA-Public Use
  Company Number: JP-MYLANLABS-2012S1006082

PATIENT
  Age: 39 Year
  Sex: Female
  Weight: 48 kg

DRUGS (4)
  1. CARBOPLATIN [Suspect]
     Indication: OVARIAN CANCER
     Route: 041
     Dates: end: 20120126
  2. TAXOL [Suspect]
     Indication: OVARIAN CANCER
     Route: 041
     Dates: end: 20120126
  3. TAXOL [Suspect]
     Route: 041
     Dates: start: 20120306, end: 20120306
  4. CARBOPLATIN [Suspect]
     Route: 041
     Dates: start: 20120306, end: 20120306

REACTIONS (2)
  - INTESTINAL OBSTRUCTION [None]
  - WHITE BLOOD CELL COUNT DECREASED [None]
